FAERS Safety Report 8364608-3 (Version None)
Quarter: 2012Q2

REPORT INFORMATION
  Report Type: 
  Country: None (occurrence: None)
  Receive Date: 20120516
  Receipt Date: 20120514
  Transmission Date: 20120825
  Serious: Yes (Other)
  Sender: FDA-Public Use
  Company Number: BR-ROCHE-1069244

PATIENT

DRUGS (1)
  1. MABTHERA [Suspect]
     Indication: MULTIPLE SCLEROSIS

REACTIONS (1)
  - GASTRIC CANCER [None]
